FAERS Safety Report 24228408 (Version 1)
Quarter: 2024Q3

REPORT INFORMATION
  Report Type: Report from Study
  Country: CA (occurrence: CA)
  Receive Date: 20240820
  Receipt Date: 20240820
  Transmission Date: 20241017
  Serious: Yes (Other)
  Sender: ABBVIE
  Company Number: CA-ABBVIE-5882357

PATIENT
  Age: 40 Year
  Sex: Male

DRUGS (1)
  1. SKYRIZI [Suspect]
     Active Substance: RISANKIZUMAB-RZAA
     Indication: Crohn^s disease
     Route: 058
     Dates: start: 20230126

REACTIONS (9)
  - Surgery [Unknown]
  - Rash [Unknown]
  - Crohn^s disease [Unknown]
  - Back pain [Unknown]
  - Aphthous ulcer [Unknown]
  - Oral herpes [Recovered/Resolved]
  - Fatigue [Unknown]
  - Abdominal discomfort [Unknown]
  - Scar [Unknown]

NARRATIVE: CASE EVENT DATE: 20230101
